FAERS Safety Report 7020075-3 (Version None)
Quarter: 2010Q3

REPORT INFORMATION
  Report Type: 
  Country: None (occurrence: None)
  Receive Date: 20100929
  Receipt Date: 20100915
  Transmission Date: 20110219
  Serious: Yes (Other)
  Sender: FDA-Public Use
  Company Number: SE-RANBAXY-2010RR-38136

PATIENT
  Age: 59 Year
  Sex: Female
  Weight: 50 kg

DRUGS (22)
  1. FLUCONAZOLE [Suspect]
     Indication: ORAL CANDIDIASIS
     Dosage: 50 MG, UNK
     Dates: start: 20000101
  2. FLUCONAZOLE [Suspect]
     Indication: CANDIDIASIS
     Dosage: 400 MG, UNK
  3. PHENYTOIN [Suspect]
     Indication: EPILEPSY
     Dosage: 700 MG, UNK
  4. PHENYTOIN [Suspect]
     Dosage: 600 MG, UNK
  5. PREDNISOLONE [Concomitant]
  6. AZATHIOPRINE [Concomitant]
  7. ALFACALCIDOL [Concomitant]
  8. AMPICILLIN SODIUM [Concomitant]
  9. AMOXICILLIN [Concomitant]
  10. CALCIUM CARBONATE [Concomitant]
  11. CLONIDINE [Concomitant]
  12. CITALOPRAM HYDROBROMIDE [Concomitant]
  13. FUROSEMIDE [Concomitant]
  14. CLONAZEPAM [Concomitant]
  15. ZOPICLONE [Concomitant]
  16. POTASSIUM [Concomitant]
  17. LOPERAMIDE [Concomitant]
  18. METHADONE [Concomitant]
  19. GABAPENTIN [Concomitant]
  20. PANTOPRAZOLE [Concomitant]
  21. METOCLOPRAMIDE [Concomitant]
  22. PROPIOMAZINE [Concomitant]

REACTIONS (5)
  - ALTERED STATE OF CONSCIOUSNESS [None]
  - ATAXIA [None]
  - CONFUSIONAL STATE [None]
  - DRUG INTERACTION [None]
  - VERTIGO [None]
